FAERS Safety Report 7123081-3 (Version None)
Quarter: 2010Q4

REPORT INFORMATION
  Report Type: 
  Country: None (occurrence: None)
  Receive Date: 20101125
  Receipt Date: 20101118
  Transmission Date: 20110411
  Serious: Yes (Death, Hospitalization)
  Sender: FDA-Public Use
  Company Number: US-BIOGENIDEC-2010BI034315

PATIENT
  Sex: Male

DRUGS (1)
  1. AVONEX [Suspect]
     Indication: CHRONIC INFLAMMATORY DEMYELINATING POLYRADICULONEUROPATHY
     Route: 030
     Dates: start: 20071003, end: 20091201

REACTIONS (3)
  - ANAEMIA [None]
  - DECUBITUS ULCER [None]
  - SEPSIS [None]
